FAERS Safety Report 6962471-6 (Version None)
Quarter: 2010Q3

REPORT INFORMATION
  Report Type: 
  Country: None (occurrence: None)
  Receive Date: 20100902
  Receipt Date: 20100821
  Transmission Date: 20110219
  Serious: Yes (Other)
  Sender: FDA-Public Use
  Company Number: CA-PFIZER INC-2010099891

PATIENT
  Age: 39 Year
  Sex: Female
  Weight: 58.957 kg

DRUGS (6)
  1. LYRICA [Suspect]
     Indication: PAIN
     Dosage: 3X/DAY, 25MG AM, 50MG LUNCH AND 50MG BEDTIME
     Route: 048
     Dates: start: 20100531, end: 20100817
  2. DEPO-PROVERA [Concomitant]
     Indication: CONTRACEPTION
     Dosage: 150 MG, EVERY 3 MONTHS
     Route: 030
  3. FENTANYL [Concomitant]
     Indication: PAIN
     Dosage: 100 UG, EVERY 3 DAYS
     Route: 062
  4. VENTOLIN [Concomitant]
     Dosage: UNK
  5. FLOVENT [Concomitant]
     Dosage: UNK
  6. ATACAND [Concomitant]
     Indication: BLOOD PRESSURE ABNORMAL
     Dosage: 8 MG, 1X/DAY
     Route: 048

REACTIONS (2)
  - ROAD TRAFFIC ACCIDENT [None]
  - SUDDEN ONSET OF SLEEP [None]
